FAERS Safety Report 17299428 (Version 1)
Quarter: 2020Q1

REPORT INFORMATION
  Report Type: Spontaneous
  Country: FR (occurrence: FR)
  Receive Date: 20200122
  Receipt Date: 20200122
  Transmission Date: 20200409
  Serious: Yes (Hospitalization)
  Sender: FDA-Public Use
  Company Number: FR-PFIZER INC-2020024239

PATIENT
  Age: 25 Year

DRUGS (5)
  1. LAMALINE [ATROPA BELLADONNA EXTRACT;CAFFEINE;PAPAVER SOMNIFERUM TINCTU [Suspect]
     Active Substance: ACETAMINOPHEN\BELLADONNA LEAF\CAFFEINE\OPIUM
     Indication: INTENTIONAL PRODUCT MISUSE
     Dosage: UNSPECIFIED
     Route: 048
     Dates: start: 20181219, end: 20181219
  2. MIANSERIN [Concomitant]
     Active Substance: MIANSERIN
     Dosage: 10 MG, 1X/DAY (0-0-1)
  3. ALPRAZOLAM. [Suspect]
     Active Substance: ALPRAZOLAM
     Indication: TOXICITY TO VARIOUS AGENTS
     Dosage: 2 MG, SINGLE
     Route: 048
     Dates: start: 20190623, end: 20190623
  4. ALPRAZOLAM. [Concomitant]
     Active Substance: ALPRAZOLAM
     Dosage: 0.5 MG 0-0-1/2
  5. MIANSERIN HCL [Suspect]
     Active Substance: MIANSERIN HYDROCHLORIDE
     Indication: TOXICITY TO VARIOUS AGENTS
     Dosage: 80 MG, SINGLE
     Route: 048
     Dates: start: 20190623, end: 20190623

REACTIONS (2)
  - Poisoning deliberate [Recovered/Resolved]
  - Intentional product misuse [Recovered/Resolved]

NARRATIVE: CASE EVENT DATE: 20181219
